FAERS Safety Report 9012086 (Version 1)
Quarter: 2012Q4

REPORT INFORMATION
  Report Type: Spontaneous
  Country: GB (occurrence: None)
  Receive Date: 20121228
  Receipt Date: 20121228
  Transmission Date: 20130627
  Serious: Yes (Other)
  Sender: FDA-Public Use
  Company Number: 2012AP004285

PATIENT
  Age: 55 Year
  Sex: Male

DRUGS (8)
  1. RAMIPRIL [Suspect]
     Indication: BLOOD PRESSURE HIGH
  2. RAMIPRIL [Suspect]
     Indication: BLOOD PRESSURE HIGH
  3. RAMIPRIL [Suspect]
     Indication: BLOOD PRESSURE HIGH
  4. LOSARTAN (LOSARTAN) [Suspect]
  5. SIMVASTATIN (SIMVASTATIN) [Suspect]
  6. AMLODIPINE (AMLODIPINE) [Suspect]
  7. AMLODIPINE (AMLODIPINE) [Suspect]
  8. LERCANIDIPINE (LERCANIDIPINE) [Suspect]

REACTIONS (13)
  - Confusional state [None]
  - Dysstasia [None]
  - Drug interaction [None]
  - Depressed mood [None]
  - Throat irritation [None]
  - Myalgia [None]
  - Mental impairment [None]
  - Osteoarthritis [None]
  - Product quality issue [None]
  - Dyspnoea [None]
  - Throat irritation [None]
  - Product quality issue [None]
  - Feeling abnormal [None]
